FAERS Safety Report 8871598 (Version 3)
Quarter: 2014Q1

REPORT INFORMATION
  Report Type: Spontaneous
  Country: US (occurrence: None)
  Receive Date: 20120426
  Receipt Date: 20130107
  Transmission Date: 20141002
  Serious: No
  Sender: FDA-Public Use
  Company Number: PHEH2012US002625

PATIENT
  Age: 33 Year
  Sex: Male

DRUGS (2)
  1. GILENYA [Suspect]
     Indication: MULTIPLE SCLEROSIS
     Route: 048
     Dates: start: 20110615
  2. IBUPROFEN [Concomitant]

REACTIONS (4)
  - Constipation [None]
  - Immune system disorder [None]
  - Headache [None]
  - Inappropriate schedule of drug administration [None]
